FAERS Safety Report 22077542 (Version 8)
Quarter: 2025Q3

REPORT INFORMATION
  Report Type: Report from Study
  Country: JP (occurrence: JP)
  Receive Date: 20230309
  Receipt Date: 20250825
  Transmission Date: 20251021
  Serious: Yes (Death, Hospitalization, Other)
  Sender: ASTELLAS
  Company Number: JP-ASTELLAS-2023JP003078

PATIENT
  Age: 80 Year
  Sex: Male
  Weight: 52 kg

DRUGS (17)
  1. PADCEV [Suspect]
     Active Substance: ENFORTUMAB VEDOTIN-EJFV
     Indication: Bladder cancer recurrent
     Route: 042
     Dates: start: 20220217, end: 20220331
  2. PADCEV [Suspect]
     Active Substance: ENFORTUMAB VEDOTIN-EJFV
     Route: 042
     Dates: start: 20220418, end: 20220502
  3. PADCEV [Suspect]
     Active Substance: ENFORTUMAB VEDOTIN-EJFV
     Route: 042
     Dates: start: 20220523, end: 20220704
  4. PADCEV [Suspect]
     Active Substance: ENFORTUMAB VEDOTIN-EJFV
     Route: 042
     Dates: start: 20220801, end: 20220912
  5. PADCEV [Suspect]
     Active Substance: ENFORTUMAB VEDOTIN-EJFV
     Route: 042
     Dates: start: 20221003, end: 20221226
  6. PADCEV [Suspect]
     Active Substance: ENFORTUMAB VEDOTIN-EJFV
     Route: 042
     Dates: start: 20230109, end: 20230109
  7. PADCEV [Suspect]
     Active Substance: ENFORTUMAB VEDOTIN-EJFV
     Route: 042
     Dates: start: 20230123, end: 20250714
  8. ELIQUIS [Concomitant]
     Active Substance: APIXABAN
     Indication: Atrial fibrillation
     Route: 065
  9. ASPIRIN [Concomitant]
     Active Substance: ASPIRIN
     Indication: Angina pectoris
     Route: 065
  10. Filgrastim Injection 150ug [Concomitant]
     Indication: Pancytopenia
     Dosage: 150 ?G, ONCE DAILY
     Route: 065
     Dates: start: 20220516, end: 20220516
  11. Filgrastim Injection 150ug [Concomitant]
     Indication: White blood cell count decreased
     Dosage: 150 ?G, ONCE DAILY
     Route: 065
     Dates: start: 20220620, end: 20220620
  12. Filgrastim Injection 150ug [Concomitant]
     Dosage: 150 ?G, ONCE DAILY
     Route: 065
     Dates: start: 20220725, end: 20220725
  13. Filgrastim Injection 150ug [Concomitant]
     Dosage: 150 ?G, ONCE DAILY
     Route: 065
     Dates: start: 20220829, end: 20220829
  14. Filgrastim Injection 150ug [Concomitant]
     Dosage: 150 ?G, ONCE DAILY
     Route: 065
     Dates: start: 20220926, end: 20220926
  15. Filgrastim Injection 150ug [Concomitant]
     Dosage: 150 ?G, ONCE DAILY
     Route: 065
     Dates: start: 20221121, end: 20221121
  16. Filgrastim Injection 150ug [Concomitant]
     Dosage: 150 ?G, ONCE DAILY
     Route: 065
     Dates: start: 20221219, end: 20221219
  17. PREGABALIN [Concomitant]
     Active Substance: PREGABALIN
     Indication: Neuropathy peripheral
     Route: 065
     Dates: start: 202307, end: 202308

REACTIONS (6)
  - Interstitial lung disease [Fatal]
  - Pancytopenia [Recovered/Resolved]
  - Neuropathy peripheral [Not Recovered/Not Resolved]
  - White blood cell count decreased [Recovered/Resolved]
  - Hepatic function abnormal [Unknown]
  - Inappropriate schedule of product administration [Unknown]

NARRATIVE: CASE EVENT DATE: 20220401
